FAERS Safety Report 20384810 (Version 2)
Quarter: 2022Q1

REPORT INFORMATION
  Report Type: Spontaneous
  Country: US (occurrence: None)
  Receive Date: 20220127
  Receipt Date: 20220315
  Transmission Date: 20220424
  Serious: Yes (Hospitalization)
  Sender: FDA-Public Use
  Company Number: 2022A032829

PATIENT
  Age: 1001 Month
  Sex: Female
  Weight: 113.4 kg

DRUGS (2)
  1. FASENRA [Suspect]
     Active Substance: BENRALIZUMAB
     Indication: Asthma
     Route: 055
     Dates: start: 2020
  2. FASENRA [Suspect]
     Active Substance: BENRALIZUMAB
     Indication: Eosinophil count
     Route: 055
     Dates: start: 2020

REACTIONS (8)
  - COVID-19 [Recovering/Resolving]
  - Post-acute COVID-19 syndrome [Unknown]
  - Fatigue [Unknown]
  - Gait disturbance [Unknown]
  - Eosinophil count increased [Unknown]
  - Memory impairment [Unknown]
  - Tremor [Unknown]
  - Product dose omission issue [Unknown]

NARRATIVE: CASE EVENT DATE: 20210901
